FAERS Safety Report 5737675-0 (Version None)
Quarter: 2008Q2

REPORT INFORMATION
  Report Type: 
  Country: None (occurrence: None)
  Receive Date: 20080513
  Receipt Date: 20080513
  Transmission Date: 20081010
  Serious: Yes (Hospitalization, Other)
  Sender: FDA-Public Use
  Company Number: None

PATIENT
  Age: 70 Year
  Sex: Female
  Weight: 51.0297 kg

DRUGS (1)
  1. DIGITEK [Suspect]
     Indication: CARDIAC FAILURE CONGESTIVE
     Dosage: APPROX 3 WKS PRIOR TO ADM

REACTIONS (4)
  - CONTUSION [None]
  - INCORRECT DOSE ADMINISTERED [None]
  - INTERNATIONAL NORMALISED RATIO INCREASED [None]
  - PHARMACEUTICAL PRODUCT COMPLAINT [None]
